FAERS Safety Report 4926124-8 (Version None)
Quarter: 2006Q1

REPORT INFORMATION
  Report Type: 
  Country: None (occurrence: None)
  Receive Date: 20060228
  Receipt Date: 20050818
  Transmission Date: 20060701
  Serious: No
  Sender: FDA-Public Use
  Company Number: US-GLAXOSMITHKLINE-A0571305A

PATIENT
  Age: 50 Year
  Sex: Female
  Weight: 78.2 kg

DRUGS (5)
  1. LAMICTAL [Suspect]
     Indication: DEPRESSION
     Dosage: 25MG PER DAY
     Route: 048
     Dates: start: 20050805
  2. PAXIL [Suspect]
     Indication: PANIC ATTACK
     Route: 048
  3. XANAX [Concomitant]
     Dosage: .5MG TWICE PER DAY
  4. TRAMADOL HCL [Concomitant]
     Dosage: 1TAB PER DAY
  5. FLAGYL [Concomitant]

REACTIONS (1)
  - RASH GENERALISED [None]
